FAERS Safety Report 5322925-5 (Version None)
Quarter: 2007Q1

REPORT INFORMATION
  Report Type: 
  Country: None (occurrence: None)
  Receive Date: 20070222
  Receipt Date: 20061212
  Transmission Date: 20070707
  Serious: Yes (Other)
  Sender: FDA-Public Use
  Company Number: 2006138564

PATIENT
  Age: 79 Year
  Sex: Female
  Weight: 64 kg

DRUGS (9)
  1. EXUBERA [Suspect]
     Indication: DIABETES MELLITUS
     Dosage: (1 MG),INHALATION
     Route: 055
     Dates: start: 20061028
  2. EXUBERA [Suspect]
  3. GLYBURIDE [Concomitant]
  4. COREG [Concomitant]
  5. ZOCOR [Concomitant]
  6. LANOXIN [Concomitant]
  7. METOCLOPRAMIDE [Concomitant]
  8. ASPIRIN [Concomitant]
  9. ALL OTHER THERAPEUTIC PRODUCTS (ALL OTHER THERAPEUTIC PRODUCTS) [Concomitant]

REACTIONS (5)
  - BLOOD GLUCOSE INCREASED [None]
  - DIZZINESS [None]
  - DRUG INEFFECTIVE [None]
  - MEDICAL DEVICE COMPLICATION [None]
  - VISION BLURRED [None]
